FAERS Safety Report 8784864 (Version 1)
Quarter: 2012Q4

REPORT INFORMATION
  Report Type: 
  Country: US (occurrence: None)
  Receive Date: 20120831
  Receipt Date: 20120831
  Transmission Date: 20130627
  Serious: Yes (Life-Threatening)
  Sender: FDA-Public Use
  Company Number: 2012P1055090

PATIENT
  Age: 22 Year
  Sex: Male

DRUGS (2)
  1. FENTANYL [Suspect]
     Route: 048
  2. FENTANYL [Suspect]
     Dosage: 100 UG/HR;X1;BUCC
     Route: 002

REACTIONS (7)
  - Overdose [None]
  - Loss of consciousness [None]
  - Respiratory depression [None]
  - Oxygen saturation decreased [None]
  - Somnolence [None]
  - Wrong technique in drug usage process [None]
  - Drug screen positive [None]
